FAERS Safety Report 8947738 (Version 2)
Quarter: 2012Q4

REPORT INFORMATION
  Report Type: 
  Country: US (occurrence: US)
  Receive Date: 20121204
  Receipt Date: 20121220
  Transmission Date: 20130627
  Serious: Yes (Other)
  Sender: FDA-Public Use
  Company Number: US-BAYER-2012-119467

PATIENT
  Age: 62 Year
  Sex: Female
  Weight: 84 kg

DRUGS (8)
  1. BETASERON [Suspect]
     Indication: MS
     Dosage: 0.25 mg, QOD
     Route: 058
  2. ZETIA [Concomitant]
     Dosage: 10 mg, QD
  3. PRAVASTATIN [Concomitant]
     Indication: UNEVALUABLE EVENT
     Dosage: 40 mg, QD
  4. NEXIUM [Concomitant]
     Indication: ACID REFLUX (OESOPHAGEAL)
     Dosage: 40 mg, QD
  5. SERTRALINE [Concomitant]
     Dosage: 3 DF, QD
  6. METOPROLOL TARTRATE [Concomitant]
     Dosage: 25 mg, QD
  7. METHYLPHENID [Concomitant]
     Indication: TIREDNESS
     Dosage: 10 mg, PRN
  8. QUINAPRIL [Concomitant]
     Dosage: 0.5 DF, QD

REACTIONS (4)
  - Cholelithiasis [None]
  - Abdominal pain [None]
  - Injection site pain [Not Recovered/Not Resolved]
  - Injection site rash [Not Recovered/Not Resolved]
